FAERS Safety Report 21319151 (Version 1)
Quarter: 2022Q3

REPORT INFORMATION
  Report Type: Spontaneous
  Country: US (occurrence: US)
  Receive Date: 20220911
  Receipt Date: 20220911
  Transmission Date: 20221027
  Serious: No
  Sender: FDA-Public Use
  Company Number: US-SA-SAC20220905001128

PATIENT
  Age: 50 Year
  Sex: Female

DRUGS (7)
  1. AUBAGIO [Suspect]
     Active Substance: TERIFLUNOMIDE
     Indication: Multiple sclerosis
     Dosage: 1 DF, QD
     Route: 048
     Dates: start: 202011
  2. UBRELVY [Concomitant]
     Active Substance: UBROGEPANT
  3. VITAMIN D3 [Concomitant]
     Active Substance: CHOLECALCIFEROL
  4. WELLBUTRIN [Concomitant]
     Active Substance: BUPROPION HYDROCHLORIDE
  5. NEXIUM I.V. [Concomitant]
     Active Substance: ESOMEPRAZOLE SODIUM
  6. VALTREX [Concomitant]
     Active Substance: VALACYCLOVIR HYDROCHLORIDE
  7. CYMBALTA [Concomitant]
     Active Substance: DULOXETINE HYDROCHLORIDE

REACTIONS (4)
  - Decreased interest [Unknown]
  - Hair texture abnormal [Unknown]
  - COVID-19 [Unknown]
  - Alopecia [Recovering/Resolving]

NARRATIVE: CASE EVENT DATE: 20220601
